FAERS Safety Report 13053457 (Version 1)
Quarter: 2016Q4

REPORT INFORMATION
  Report Type: Spontaneous
  Country: IL (occurrence: IL)
  Receive Date: 20161222
  Receipt Date: 20161222
  Transmission Date: 20170207
  Serious: Yes (Other)
  Sender: FDA-Public Use
  Company Number: IL-TEVA-674241ACC

PATIENT
  Age: 72 Year
  Sex: Female

DRUGS (6)
  1. TAMOXIFEN [Suspect]
     Active Substance: TAMOXIFEN
     Indication: BREAST CANCER
     Route: 065
  2. LETROZOLE. [Concomitant]
     Active Substance: LETROZOLE
  3. PALBOCICLIB [Suspect]
     Active Substance: PALBOCICLIB
     Indication: BREAST CANCER
     Route: 065
     Dates: start: 201605, end: 201608
  4. EXEMESTANE. [Concomitant]
     Active Substance: EXEMESTANE
  5. FULVESTRANT [Concomitant]
     Active Substance: FULVESTRANT
  6. EVEROLIMUS [Concomitant]
     Active Substance: EVEROLIMUS

REACTIONS (2)
  - Renal failure [Unknown]
  - Blood creatinine increased [Recovering/Resolving]
